FAERS Safety Report 5663401-X (Version None)
Quarter: 2008Q1

REPORT INFORMATION
  Report Type: 
  Country: None (occurrence: None)
  Receive Date: 20080306
  Receipt Date: 20080221
  Transmission Date: 20080703
  Serious: Yes (Death)
  Sender: FDA-Public Use
  Company Number: TNZDK200800026

PATIENT

DRUGS (1)
  1. INNOHEP [Suspect]
     Dosage: 175 ANTIXA/KG (DAILY),SUBCUTANEOUS
     Route: 058

REACTIONS (1)
  - DEATH [None]
